FAERS Safety Report 13922350 (Version 1)
Quarter: 2017Q3

REPORT INFORMATION
  Report Type: Other
  Country: GB (occurrence: GB)
  Receive Date: 20170830
  Receipt Date: 20170830
  Transmission Date: 20171127
  Serious: Yes (Hospitalization, Other)
  Sender: FDA-Public Use
  Company Number: GB-OSMOTICA_PHARMACEUTICAL_US_LLC-POI0573201700045

PATIENT
  Age: 64 Year
  Sex: Male

DRUGS (2)
  1. DIVIGEL [Suspect]
     Active Substance: ESTRADIOL
     Indication: PROSTATE CANCER
     Dosage: 3 PATCHES, 100 MCG PER 24 HOURS, CHANGED TWICE A WEEK
     Route: 062
     Dates: start: 2015, end: 2015
  2. DIVIGEL [Suspect]
     Active Substance: ESTRADIOL
     Dosage: 2 PATCHES, 100 MCG PER 24 HOURS, CHANGED TWICE A WEEK
     Route: 062
     Dates: start: 2015, end: 2015

REACTIONS (1)
  - Erythema nodosum [Recovered/Resolved]

NARRATIVE: CASE EVENT DATE: 2015
